FAERS Safety Report 11728732 (Version 2)
Quarter: 2016Q1

REPORT INFORMATION
  Report Type: Spontaneous
  Country: JP (occurrence: JP)
  Receive Date: 20151112
  Receipt Date: 20160111
  Transmission Date: 20160525
  Serious: Yes (Death)
  Sender: FDA-Public Use
  Company Number: JP-PFIZER INC-2015386821

PATIENT
  Age: 73 Year
  Sex: Male
  Weight: 63 kg

DRUGS (15)
  1. JZOLOFT [Suspect]
     Active Substance: SERTRALINE HYDROCHLORIDE
     Dosage: 50 MG, 1X/DAY
     Route: 048
     Dates: start: 20150924, end: 20151004
  2. JZOLOFT [Suspect]
     Active Substance: SERTRALINE HYDROCHLORIDE
     Dosage: 75 MG, DAILY
     Route: 048
     Dates: start: 20151005
  3. PROMAC [Concomitant]
     Active Substance: NITROFURANTOIN
     Indication: DECREASED APPETITE
     Dosage: 150 MG, 2X/DAY
     Route: 048
     Dates: start: 20150924, end: 20151004
  4. THIAMINE HYDROCHLORIDE. [Concomitant]
     Active Substance: THIAMINE HYDROCHLORIDE
     Indication: DECREASED APPETITE
     Dosage: 10 MG, SINGLE
     Route: 041
     Dates: start: 20151007, end: 20151007
  5. JZOLOFT [Suspect]
     Active Substance: SERTRALINE HYDROCHLORIDE
     Dosage: 25 MG, 1X/DAY
     Route: 048
     Dates: start: 20150918, end: 20150923
  6. MYSLEE [Concomitant]
     Active Substance: ZOLPIDEM TARTRATE
     Dosage: 10 MG, 1X/DAY
     Route: 048
     Dates: start: 20150924
  7. JZOLOFT [Suspect]
     Active Substance: SERTRALINE HYDROCHLORIDE
     Indication: DEPRESSION
     Dosage: 25 MG, 1X/DAY
     Route: 048
     Dates: start: 20150901, end: 20150907
  8. MARGENOL [Concomitant]
     Indication: DEPRESSION
     Dosage: 100 MG, 2X/DAY
     Route: 048
     Dates: start: 20140707, end: 20150923
  9. EURODIN [Concomitant]
     Active Substance: ESTAZOLAM
     Indication: INSOMNIA
     Dosage: 1 MG, 1X/DAY
     Route: 048
     Dates: start: 20150824, end: 20151004
  10. CYANOCOBALAMIN. [Concomitant]
     Active Substance: CYANOCOBALAMIN
     Indication: DECREASED APPETITE
     Dosage: 1 MG, 1X/DAY
     Route: 041
     Dates: start: 20151007, end: 20151007
  11. MARGENOL [Concomitant]
     Indication: DECREASED APPETITE
     Dosage: 150 MG, 3X/DAY
     Route: 048
     Dates: start: 20150924
  12. MYSLEE [Concomitant]
     Active Substance: ZOLPIDEM TARTRATE
     Indication: INSOMNIA
     Dosage: 5 MG, 1X/DAY
     Route: 048
     Dates: start: 20150916, end: 20150917
  13. PHYSIO 140 [Concomitant]
     Indication: DECREASED APPETITE
     Dosage: 250 ML, 1X/DAY
     Route: 041
     Dates: start: 20151007, end: 20151007
  14. PLETAAL [Concomitant]
     Active Substance: CILOSTAZOL
     Indication: PERIPHERAL ARTERIAL OCCLUSIVE DISEASE
     Dosage: 200 MG, 2X/DAY
     Route: 048
     Dates: start: 20130930
  15. EURODIN [Concomitant]
     Active Substance: ESTAZOLAM
     Dosage: 2 MG, 1X/DAY
     Route: 048
     Dates: start: 20151005

REACTIONS (1)
  - Completed suicide [Fatal]

NARRATIVE: CASE EVENT DATE: 20151016
